FAERS Safety Report 5198913-9 (Version None)
Quarter: 2007Q1

REPORT INFORMATION
  Report Type: 
  Country: None (occurrence: None)
  Receive Date: 20070104
  Receipt Date: 20061227
  Transmission Date: 20070707
  Serious: Yes (Death, Life-Threatening, Disabling, Other)
  Sender: FDA-Public Use
  Company Number: JP-BRISTOL-MYERS SQUIBB COMPANY-13414248

PATIENT
  Age: 74 Year
  Sex: Female

DRUGS (7)
  1. TAXOL [Suspect]
     Indication: OVARIAN CANCER
     Route: 041
     Dates: start: 20051219, end: 20060404
  2. PARAPLATIN [Suspect]
     Indication: OVARIAN CANCER
     Route: 041
     Dates: start: 20051219, end: 20060404
  3. NORVASC [Suspect]
     Indication: HYPERTENSION
     Route: 048
     Dates: end: 20060525
  4. KINEDAK [Suspect]
     Indication: NEUROPATHY PERIPHERAL
     Route: 048
     Dates: end: 20060525
  5. CYANOCOBALAMIN [Suspect]
     Indication: NEUROPATHY PERIPHERAL
     Route: 048
     Dates: end: 20060525
  6. GASTER [Suspect]
     Indication: GASTRITIS
     Route: 048
     Dates: end: 20060525
  7. FASTIC [Suspect]
     Indication: DIABETES MELLITUS NON-INSULIN-DEPENDENT
     Route: 048
     Dates: start: 20060119, end: 20060525

REACTIONS (5)
  - APLASTIC ANAEMIA [None]
  - ARTHRALGIA [None]
  - DISSEMINATED INTRAVASCULAR COAGULATION [None]
  - NEUROPATHY PERIPHERAL [None]
  - STAPHYLOCOCCAL INFECTION [None]
